FAERS Safety Report 18361830 (Version 1)
Quarter: 2020Q4

REPORT INFORMATION
  Report Type: Report from Study
  Country: IT (occurrence: IT)
  Receive Date: 20201008
  Receipt Date: 20201008
  Transmission Date: 20210114
  Serious: Yes (Hospitalization, Other)
  Sender: FDA-Public Use
  Company Number: IT-TEVA-2020-IT-1836961

PATIENT
  Age: 73 Year
  Sex: Male

DRUGS (9)
  1. BENDAMUSTINE HYDROCHLORIDE. [Suspect]
     Active Substance: BENDAMUSTINE HYDROCHLORIDE
     Indication: LYMPHOMA
     Route: 042
     Dates: start: 20181031, end: 20190318
  2. BENDAMUSTINE HYDROCHLORIDE. [Suspect]
     Active Substance: BENDAMUSTINE HYDROCHLORIDE
     Route: 042
     Dates: end: 20200318
  3. ALLOPURINOL. [Concomitant]
     Active Substance: ALLOPURINOL
     Indication: PRODUCT USED FOR UNKNOWN INDICATION
     Route: 065
  4. SOTALOL. [Concomitant]
     Active Substance: SOTALOL
     Indication: PRODUCT USED FOR UNKNOWN INDICATION
     Route: 065
  5. ARANESP [Concomitant]
     Active Substance: DARBEPOETIN ALFA
     Indication: PRODUCT USED FOR UNKNOWN INDICATION
     Route: 065
  6. RITUXIMAB. [Suspect]
     Active Substance: RITUXIMAB
     Indication: LYMPHOMA
     Route: 042
     Dates: start: 20181031, end: 20190318
  7. BACTRIM [Concomitant]
     Active Substance: SULFAMETHOXAZOLE\TRIMETHOPRIM
     Indication: PRODUCT USED FOR UNKNOWN INDICATION
     Dosage: 160 MG + 800 MG
     Route: 065
  8. FERRO-GRAD [Concomitant]
     Active Substance: FERROUS SULFATE
     Indication: PRODUCT USED FOR UNKNOWN INDICATION
     Route: 065
  9. ACICLOVIR [Concomitant]
     Active Substance: ACYCLOVIR
     Indication: PRODUCT USED FOR UNKNOWN INDICATION
     Route: 065

REACTIONS (5)
  - Hyperpyrexia [Recovering/Resolving]
  - Condition aggravated [Recovering/Resolving]
  - Dyspnoea exertional [Recovering/Resolving]
  - Neutropenia [Unknown]
  - COVID-19 pneumonia [Unknown]

NARRATIVE: CASE EVENT DATE: 20200809
